FAERS Safety Report 10442615 (Version 1)
Quarter: 2014Q3

REPORT INFORMATION
  Report Type: Spontaneous
  Country: PL (occurrence: PL)
  Receive Date: 20140909
  Receipt Date: 20140909
  Transmission Date: 20150326
  Serious: Yes (Other)
  Sender: FDA-Public Use
  Company Number: PL-PFIZER INC-2014244343

PATIENT
  Age: 76 Year
  Sex: Male
  Weight: 79 kg

DRUGS (2)
  1. IRINOTECAN HCL [Suspect]
     Active Substance: IRINOTECAN HYDROCHLORIDE
     Indication: COLON CANCER
     Dosage: 333 MG, UNK
     Route: 042
     Dates: start: 20140401, end: 20140401
  2. 5 FLUOROURACIL /00098801/ [Concomitant]
     Active Substance: FLUOROURACIL
     Dosage: 1850 MG, UNK
     Route: 042
     Dates: start: 20140401, end: 20140401

REACTIONS (2)
  - Atrial fibrillation [Recovered/Resolved]
  - Asthenia [Recovered/Resolved]

NARRATIVE: CASE EVENT DATE: 20140415
